FAERS Safety Report 12292743 (Version 1)
Quarter: 2016Q2

REPORT INFORMATION
  Report Type: Report from Study
  Country: US (occurrence: US)
  Receive Date: 20160421
  Receipt Date: 20160421
  Transmission Date: 20160815
  Serious: No
  Sender: FDA-Public Use
  Company Number: US-AMGEN-USASL2016030600

PATIENT
  Age: 74 Year

DRUGS (2)
  1. REPATHA [Suspect]
     Active Substance: EVOLOCUMAB
     Indication: PRODUCT USED FOR UNKNOWN INDICATION
     Dosage: UNK
     Route: 065
  2. B COMPLEX                          /00322001/ [Concomitant]
     Dosage: EVERY 2 TO 3 MONTHS

REACTIONS (6)
  - Malaise [Unknown]
  - Stress [Unknown]
  - Fatigue [Unknown]
  - Memory impairment [Unknown]
  - Asthenia [Unknown]
  - Blood triglycerides increased [Recovered/Resolved]
